FAERS Safety Report 5534103-5 (Version None)
Quarter: 2007Q4

REPORT INFORMATION
  Report Type: 
  Country: None (occurrence: None)
  Receive Date: 20071129
  Receipt Date: 20071129
  Transmission Date: 20080405
  Serious: No
  Sender: FDA-Public Use
  Company Number: None

PATIENT
  Age: 33 Year
  Sex: Female
  Weight: 54.4316 kg

DRUGS (1)
  1. MIRENA [Suspect]
     Indication: CONTRACEPTION
     Dosage: 1 5 YR INTRA-UTERI
     Route: 015
     Dates: start: 20070220, end: 20071016

REACTIONS (5)
  - ACNE [None]
  - EMOTIONAL DISORDER [None]
  - MOOD SWINGS [None]
  - MUSCLE SPASMS [None]
  - VAGINAL HAEMORRHAGE [None]
